FAERS Safety Report 7096416-8 (Version None)
Quarter: 2010Q4

REPORT INFORMATION
  Report Type: 
  Country: None (occurrence: None)
  Receive Date: 20101111
  Receipt Date: 20101102
  Transmission Date: 20110411
  Serious: Yes (Hospitalization)
  Sender: FDA-Public Use
  Company Number: FR-ASTRAZENECA-2010SE51936

PATIENT
  Age: 20088 Day
  Sex: Female

DRUGS (5)
  1. DIPRIVAN [Suspect]
     Dosage: 8 ML
     Route: 042
     Dates: start: 20101003, end: 20101003
  2. ERYTHROMYCINE [Suspect]
     Route: 042
     Dates: start: 20101001, end: 20101004
  3. IMIPENEM AND CILASTATIN [Suspect]
     Route: 042
     Dates: start: 20101002, end: 20101008
  4. ROSUVASTATIN [Concomitant]
     Indication: HYPERCHOLESTEROLAEMIA
  5. AMLODIPINEL [Concomitant]
     Indication: HYPERTENSION

REACTIONS (1)
  - HEPATITIS CHOLESTATIC [None]
